FAERS Safety Report 9548723 (Version 2)
Quarter: 2014Q3

REPORT INFORMATION
  Report Type: Spontaneous
  Country: US (occurrence: None)
  Receive Date: 20130724
  Receipt Date: 20140702
  Transmission Date: 20150326
  Serious: Yes (Other)
  Sender: FDA-Public Use
  Company Number: PHEH2013US009947

PATIENT
  Age: 26 Year
  Sex: Male

DRUGS (2)
  1. LATUDA (LURASIDONE HYDROCHLORIDE) [Concomitant]
  2. FANAPT [Suspect]
     Active Substance: ILOPERIDONE
     Indication: SCHIZOPHRENIA
     Route: 048

REACTIONS (1)
  - Syncope [None]

NARRATIVE: CASE EVENT DATE: 201304
